FAERS Safety Report 19118619 (Version 1)
Quarter: 2021Q2

REPORT INFORMATION
  Report Type: Spontaneous
  Country: US (occurrence: US)
  Receive Date: 20210409
  Receipt Date: 20210409
  Transmission Date: 20210717
  Serious: Yes (Other)
  Sender: FDA-Public Use
  Company Number: US-UCBSA-2021015053

PATIENT
  Age: 22 Year
  Sex: Male

DRUGS (13)
  1. QUETIAPINE. [Concomitant]
     Active Substance: QUETIAPINE
     Dosage: 600 MILLIGRAM XR ONCE BEDTIME
  2. DIAZEPAM. [Concomitant]
     Active Substance: DIAZEPAM
     Indication: SEIZURE
     Dosage: 15 MILLIGRAM, AT BEDTIME
  3. LITHIUM. [Concomitant]
     Active Substance: LITHIUM
     Indication: PRODUCT USED FOR UNKNOWN INDICATION
     Dosage: UNKNOWN DOSE
  4. OXCARBAZEPINE. [Suspect]
     Active Substance: OXCARBAZEPINE
     Indication: SEIZURE
     Dosage: 1200 MILLIGRAM, 2X/DAY (BID)
  5. LURASIDONE [Concomitant]
     Active Substance: LURASIDONE
     Dosage: 80 MILLIGRAM, AT BEDTIME
  6. DIAZEPAM. [Concomitant]
     Active Substance: DIAZEPAM
     Indication: ANXIETY
  7. LACOSAMIDE. [Suspect]
     Active Substance: LACOSAMIDE
     Dosage: RESTARTED
  8. LURASIDONE [Concomitant]
     Active Substance: LURASIDONE
     Indication: PRODUCT USED FOR UNKNOWN INDICATION
     Dosage: 80 MILLIGRAM
  9. LEVETIRACETAM. [Suspect]
     Active Substance: LEVETIRACETAM
     Indication: SEIZURE
     Dosage: EXTENDED RELEASE, 1000 MILLIGRAM, 2X/DAY (BID)
  10. ARIPIPRAZOLE. [Concomitant]
     Active Substance: ARIPIPRAZOLE
     Indication: PRODUCT USED FOR UNKNOWN INDICATION
     Dosage: 2 MILLIGRAM DAILY
  11. LACOSAMIDE. [Suspect]
     Active Substance: LACOSAMIDE
     Indication: SEIZURE
     Dosage: 200 MILLIGRAM, 2X/DAY (BID)
  12. BRIVARACETAM [Suspect]
     Active Substance: BRIVARACETAM
     Indication: SEIZURE
     Dosage: 100 MG TWICE DAILY
  13. QUETIAPINE. [Concomitant]
     Active Substance: QUETIAPINE
     Indication: PRODUCT USED FOR UNKNOWN INDICATION
     Dosage: 200 MG XR TWICE DAILY

REACTIONS (7)
  - Hallucination [Recovering/Resolving]
  - Anxiety [Recovering/Resolving]
  - Delusion [Recovered/Resolved]
  - Fear [Unknown]
  - Psychotic disorder [Recovering/Resolving]
  - Suicidal ideation [Recovered/Resolved]
  - Weight increased [Unknown]
